FAERS Safety Report 23084723 (Version 3)
Quarter: 2023Q4

REPORT INFORMATION
  Report Type: Report from Study
  Country: ES (occurrence: ES)
  Receive Date: 20231019
  Receipt Date: 20231106
  Transmission Date: 20240110
  Serious: Yes (Hospitalization)
  Sender: FDA-Public Use
  Company Number: ES-PFIZER INC-PV202300171003

PATIENT
  Age: 18 Year
  Sex: Male
  Weight: 60.6 kg

DRUGS (28)
  1. IRINOTECAN HYDROCHLORIDE [Suspect]
     Active Substance: IRINOTECAN HYDROCHLORIDE
     Indication: Medulloblastoma
     Dosage: 80 MG, CYCLIC
     Route: 042
     Dates: start: 20220131
  2. ABEMACICLIB [Suspect]
     Active Substance: ABEMACICLIB
     Indication: Medulloblastoma
     Dosage: 100 MG, 2X/DAY (BID)
     Route: 048
     Dates: start: 20220131, end: 20220220
  3. ABEMACICLIB [Suspect]
     Active Substance: ABEMACICLIB
     Indication: Neoplasm
     Dosage: 75 MG, 2X/DAY (BID)
     Route: 048
     Dates: start: 20220221, end: 20220301
  4. ABEMACICLIB [Suspect]
     Active Substance: ABEMACICLIB
     Dosage: 75 MG, 2X/DAY (BID)
     Route: 048
     Dates: start: 20220304, end: 20220517
  5. ABEMACICLIB [Suspect]
     Active Substance: ABEMACICLIB
     Dosage: 75 MG, 2X/DAY (BID)
     Route: 048
     Dates: start: 20220519, end: 20220610
  6. ABEMACICLIB [Suspect]
     Active Substance: ABEMACICLIB
     Dosage: 75 MG, 2X/DAY
     Route: 048
     Dates: start: 20220616, end: 20220812
  7. ABEMACICLIB [Suspect]
     Active Substance: ABEMACICLIB
     Dosage: 75 MG, 2X/DAY (BID)
     Route: 048
     Dates: start: 20220815, end: 20230925
  8. TEMOZOLOMIDE [Suspect]
     Active Substance: TEMOZOLOMIDE
     Indication: Medulloblastoma
     Dosage: 160 MG, CYCLIC
     Route: 048
     Dates: start: 20220131, end: 20220204
  9. TEMOZOLOMIDE [Suspect]
     Active Substance: TEMOZOLOMIDE
     Dosage: 155 MG, CYCLIC
     Route: 048
     Dates: start: 20220221
  10. TEMOZOLOMIDE [Suspect]
     Active Substance: TEMOZOLOMIDE
     Dosage: 155 MG, CYCLIC
     Route: 048
     Dates: start: 20220221
  11. LEVOTHYROXINE [Concomitant]
     Active Substance: LEVOTHYROXINE
     Dosage: UNK
     Dates: start: 201809
  12. LACOSAMIDE [Concomitant]
     Active Substance: LACOSAMIDE
     Dosage: UNK
     Dates: start: 20211105
  13. DEXAMETHASONE [Concomitant]
     Active Substance: DEXAMETHASONE
     Indication: Nausea
     Dosage: UNK
     Dates: start: 20220201
  14. CLORAZEPATE DIPOTASSIUM [Concomitant]
     Active Substance: CLORAZEPATE DIPOTASSIUM
     Dosage: UNK
     Dates: start: 20220128
  15. LORAZEPAM [Concomitant]
     Active Substance: LORAZEPAM
     Dosage: UNK
     Dates: start: 20220207
  16. ACETAMINOPHEN [Concomitant]
     Active Substance: ACETAMINOPHEN
     Indication: Abdominal pain
     Dosage: UNK
     Dates: start: 20220207
  17. LOPERAMIDE [Concomitant]
     Active Substance: LOPERAMIDE
     Indication: Diarrhoea
     Dosage: UNK
     Dates: start: 20220208
  18. SULFAMETHOXAZOLE\TRIMETHOPRIM [Concomitant]
     Active Substance: SULFAMETHOXAZOLE\TRIMETHOPRIM
     Dosage: UNK
     Dates: start: 20220305
  19. METAMIZOLE [Concomitant]
     Active Substance: METAMIZOLE
     Indication: Headache
     Dosage: UNK
     Dates: start: 20220301
  20. MICONAZOLE [Concomitant]
     Active Substance: MICONAZOLE
     Indication: Rash
     Dosage: UNK
     Dates: start: 20220325
  21. BRIVARACETAM [Concomitant]
     Active Substance: BRIVARACETAM
     Dosage: UNK
     Dates: start: 20220411
  22. ONDANSETRON [Concomitant]
     Active Substance: ONDANSETRON
     Indication: Nausea
     Dosage: UNK
     Dates: start: 20220404
  23. ONDANSETRON [Concomitant]
     Active Substance: ONDANSETRON
     Indication: Prophylaxis
  24. OMEPRAZOLE [Concomitant]
     Active Substance: OMEPRAZOLE
     Indication: Dyspepsia
     Dosage: UNK
     Dates: start: 20221115
  25. METHYLPREDNISOLONE [Concomitant]
     Active Substance: METHYLPREDNISOLONE
     Indication: Rash
     Dosage: UNK
     Dates: start: 20230106
  26. CETIRIZINE [Concomitant]
     Active Substance: CETIRIZINE HYDROCHLORIDE
     Indication: Rhinitis allergic
     Dosage: UNK
     Dates: start: 20230228
  27. POTASSIUM BICARBONATE [Concomitant]
     Active Substance: POTASSIUM BICARBONATE
     Indication: Prophylaxis
     Dosage: UNK
     Dates: start: 20230404
  28. MEGESTROL ACETATE [Concomitant]
     Active Substance: MEGESTROL ACETATE
     Indication: Decreased appetite
     Dosage: UNK
     Dates: start: 20230512

REACTIONS (1)
  - Cognitive disorder [Recovered/Resolved]

NARRATIVE: CASE EVENT DATE: 20230922
